FAERS Safety Report 4688749-7 (Version None)
Quarter: 2005Q2

REPORT INFORMATION
  Report Type: 
  Country: None (occurrence: None)
  Receive Date: 20050613
  Receipt Date: 20050602
  Transmission Date: 20051028
  Serious: Yes (Hospitalization)
  Sender: FDA-Public Use
  Company Number: PHBS2005PT07916

PATIENT
  Age: 12 Year
  Sex: Male

DRUGS (3)
  1. NIMESULIDE [Suspect]
     Indication: DENTAL TREATMENT
     Route: 065
     Dates: start: 20030101, end: 20030101
  2. AMOXICILLIN TRIHYDRATE [Concomitant]
     Dosage: 2 DOSES
     Route: 048
     Dates: start: 20030101, end: 20030101
  3. VOLTAREN [Suspect]
     Indication: DENTAL TREATMENT
     Dosage: 50 MG, ONCE/SINGLE
     Route: 048
     Dates: start: 20030101, end: 20030101

REACTIONS (8)
  - DYSPNOEA [None]
  - EYELID OEDEMA [None]
  - FACE OEDEMA [None]
  - PRURITUS [None]
  - STRIDOR [None]
  - THROAT TIGHTNESS [None]
  - TONGUE OEDEMA [None]
  - URTICARIA [None]
